FAERS Safety Report 6550731-2 (Version None)
Quarter: 2010Q1

REPORT INFORMATION
  Report Type: 
  Country: None (occurrence: None)
  Receive Date: 20100125
  Receipt Date: 20100111
  Transmission Date: 20100710
  Serious: Yes (Other)
  Sender: FDA-Public Use
  Company Number: PHEH2008US07414

PATIENT
  Sex: Female
  Weight: 73.696 kg

DRUGS (22)
  1. ZOMETA [Suspect]
     Dosage: 4MG Q 28 DAYS
     Route: 041
     Dates: start: 20031001, end: 20070323
  2. AREDIA [Suspect]
     Dosage: Q 3 MONTHS
     Dates: start: 20070323
  3. PAXIL [Concomitant]
     Dosage: 20MG QD
     Dates: end: 20080801
  4. CYMBALTA [Concomitant]
     Dosage: 30MG QD
     Dates: start: 20080723
  5. NAMENDA [Concomitant]
     Dosage: 5MG BID
     Dates: start: 20080723
  6. CEREFOLIN NAC [Concomitant]
     Dosage: 1 TAB IN AM
  7. DEPLIN [Concomitant]
     Dosage: 1 TAB IN AM
     Dates: start: 20080723
  8. EFFEXOR [Concomitant]
  9. PROZAC [Concomitant]
  10. COUMADIN [Concomitant]
     Dosage: UNK
     Dates: start: 20080708
  11. HERCEPTIN [Concomitant]
     Dosage: 4MG/KG Q3WEEKS
  12. HERCEPTIN [Concomitant]
     Dosage: 2MG/KG Q3WEEKS
  13. FEMARA [Concomitant]
     Dosage: 2.5MG PO QD
     Route: 048
  14. PERIDEX [Concomitant]
     Dosage: X4 PER DAY
  15. MINOCYCLINE HCL [Concomitant]
     Dosage: UNK
     Dates: start: 20071214, end: 20071228
  16. XYLOCAINE [Concomitant]
     Dosage: PRN
     Dates: start: 20071214
  17. DIFLUCAN [Concomitant]
  18. NYSTATIN [Concomitant]
  19. TAXOL + CARBOPLATIN [Concomitant]
     Dosage: UNK
     Dates: start: 20030904, end: 20040402
  20. TAXOL [Concomitant]
     Dosage: UNK
     Dates: start: 20040402, end: 20040423
  21. FASLODEX [Concomitant]
     Dosage: 250MG IM Q28DAYS
  22. HEPARIN LOCK-FLUSH [Concomitant]
     Dosage: 500 UNITS

REACTIONS (42)
  - ANHEDONIA [None]
  - ANXIETY [None]
  - APHASIA [None]
  - ATAXIA [None]
  - AURICULAR SWELLING [None]
  - BREAST CANCER METASTATIC [None]
  - CELLULITIS [None]
  - CHOLELITHIASIS [None]
  - CONFUSIONAL STATE [None]
  - DIZZINESS [None]
  - DYSTHYMIC DISORDER [None]
  - FALL [None]
  - FLAT AFFECT [None]
  - GAIT DISTURBANCE [None]
  - HEADACHE [None]
  - HEPATIC CANCER METASTATIC [None]
  - HEPATIC LESION [None]
  - HERPES SIMPLEX [None]
  - HYDROCEPHALUS [None]
  - HYPOACUSIS [None]
  - INFECTION [None]
  - INJURY [None]
  - MAJOR DEPRESSION [None]
  - MEMORY IMPAIRMENT [None]
  - MENINGIOMA [None]
  - MENINGIOMA SURGERY [None]
  - MUSCLE DISORDER [None]
  - MUSCULAR WEAKNESS [None]
  - NAUSEA [None]
  - OSTEOMYELITIS [None]
  - OSTEONECROSIS [None]
  - OSTEOPENIA [None]
  - OSTEOSCLEROSIS [None]
  - PAIN [None]
  - PARTIAL SEIZURES [None]
  - RENAL FAILURE CHRONIC [None]
  - SECRETION DISCHARGE [None]
  - SUBDURAL HAEMATOMA [None]
  - SYNCOPE [None]
  - VENTRICULO-PERITONEAL SHUNT [None]
  - VISION BLURRED [None]
  - VOMITING [None]
